FAERS Safety Report 14517936 (Version 1)
Quarter: 2018Q1

REPORT INFORMATION
  Report Type: Spontaneous
  Country: US (occurrence: US)
  Receive Date: 20180209
  Receipt Date: 20180209
  Transmission Date: 20180509
  Serious: No
  Sender: FDA-Public Use
  Company Number: None

PATIENT
  Age: 46 Year
  Sex: Male

DRUGS (1)
  1. MYCOPHENOLATE MOFETIL CAP 250MG [Suspect]
     Active Substance: MYCOPHENOLATE MOFETIL

REACTIONS (5)
  - Pancreatitis [None]
  - Skin cancer [None]
  - Hyperglycaemia [None]
  - Hypertension [None]
  - Deep vein thrombosis [None]

NARRATIVE: CASE EVENT DATE: 20180209
